FAERS Safety Report 19643486 (Version 1)
Quarter: 2021Q3

REPORT INFORMATION
  Report Type: Report from Study
  Country: None (occurrence: NO)
  Receive Date: 20210730
  Receipt Date: 20210730
  Transmission Date: 20211014
  Serious: Yes (Hospitalization)
  Sender: FDA-Public Use
  Company Number: NO-ABBVIE-19P-122-3143800-00

PATIENT
  Age: 52 Year
  Sex: Male
  Weight: 78 kg

DRUGS (15)
  1. DEXAMETHASONE. [Concomitant]
     Active Substance: DEXAMETHASONE
     Indication: MANTLE CELL LYMPHOMA
     Dates: start: 20180514, end: 20180811
  2. CYTARABINE. [Concomitant]
     Active Substance: CYTARABINE
     Indication: MANTLE CELL LYMPHOMA
     Dates: start: 20180514, end: 20180811
  3. IBRUTINIB [Suspect]
     Active Substance: IBRUTINIB
     Indication: MANTLE CELL LYMPHOMA
     Route: 048
     Dates: start: 20180420, end: 20190409
  4. RITUXIMAB. [Concomitant]
     Active Substance: RITUXIMAB
     Indication: MANTLE CELL LYMPHOMA
     Dates: start: 20180420, end: 20180811
  5. DOXORUBICIN [Concomitant]
     Active Substance: DOXORUBICIN
     Indication: MANTLE CELL LYMPHOMA
     Dates: start: 20180420, end: 20180720
  6. MELPHALAN. [Concomitant]
     Active Substance: MELPHALAN
     Indication: MANTLE CELL LYMPHOMA
     Route: 065
     Dates: start: 20181022, end: 20181027
  7. CYCLOPHOSPHAMIDE. [Concomitant]
     Active Substance: CYCLOPHOSPHAMIDE
     Indication: MANTLE CELL LYMPHOMA
     Dates: start: 20180420, end: 20180720
  8. PREDNISON [Concomitant]
     Active Substance: PREDNISONE
     Indication: MANTLE CELL LYMPHOMA
     Dates: start: 20180420, end: 20180720
  9. OXALIPLATIN. [Concomitant]
     Active Substance: OXALIPLATIN
     Indication: MANTLE CELL LYMPHOMA
     Dates: start: 20180514, end: 20180811
  10. VINCRISTINE [Concomitant]
     Active Substance: VINCRISTINE
     Indication: MANTLE CELL LYMPHOMA
     Dates: start: 20180420, end: 20180720
  11. PANTOPRAZOLE [Concomitant]
     Active Substance: PANTOPRAZOLE
     Indication: DYSPEPSIA
     Route: 065
     Dates: start: 20180515
  12. ETOPOSIDE. [Concomitant]
     Active Substance: ETOPOSIDE
     Indication: MANTLE CELL LYMPHOMA
     Route: 065
     Dates: start: 20181022, end: 20181027
  13. CYTARABINE. [Concomitant]
     Active Substance: CYTARABINE
     Indication: MANTLE CELL LYMPHOMA
     Route: 065
     Dates: start: 20181022, end: 20181027
  14. LAKTULOSE [Concomitant]
     Active Substance: LACTULOSE
     Indication: CONSTIPATION
     Route: 065
     Dates: start: 20180426
  15. CARMUSTINE. [Concomitant]
     Active Substance: CARMUSTINE
     Indication: MANTLE CELL LYMPHOMA
     Route: 065
     Dates: start: 20181022, end: 20181027

REACTIONS (1)
  - Febrile neutropenia [Recovered/Resolved]

NARRATIVE: CASE EVENT DATE: 20190409
